FAERS Safety Report 24235642 (Version 1)
Quarter: 2024Q3

REPORT INFORMATION
  Report Type: Report from Study
  Country: US (occurrence: US)
  Receive Date: 20240822
  Receipt Date: 20240822
  Transmission Date: 20241016
  Serious: Yes (Hospitalization)
  Sender: ABBVIE
  Company Number: US-ABBVIE-5874296

PATIENT
  Sex: Female

DRUGS (2)
  1. HUMIRA [Suspect]
     Active Substance: ADALIMUMAB
     Indication: Rheumatoid arthritis
     Dosage: CITRATE FREE
     Route: 058
     Dates: start: 2021, end: 202206
  2. HUMIRA [Suspect]
     Active Substance: ADALIMUMAB
     Dosage: CITRATE FREE
     Route: 058
     Dates: start: 20220801

REACTIONS (8)
  - Lung disorder [Unknown]
  - Histoplasmosis disseminated [Recovered/Resolved]
  - Liver function test abnormal [Recovered/Resolved]
  - Glossodynia [Recovered/Resolved]
  - Hypertension [Unknown]
  - Renal function test abnormal [Recovered/Resolved]
  - Immunodeficiency [Not Recovered/Not Resolved]
  - Swollen tongue [Recovered/Resolved]

NARRATIVE: CASE EVENT DATE: 20220101
